FAERS Safety Report 6258559-8 (Version None)
Quarter: 2009Q3

REPORT INFORMATION
  Report Type: 
  Country: None (occurrence: None)
  Receive Date: 20090707
  Receipt Date: 20090623
  Transmission Date: 20100115
  Serious: Yes (Death, Life-Threatening, Other)
  Sender: FDA-Public Use
  Company Number: FR-ROCHE-639991

PATIENT
  Age: 53 Year
  Sex: Male

DRUGS (4)
  1. PEGASYS [Suspect]
     Indication: HEPATITIS C
     Route: 058
     Dates: start: 20090215
  2. PEGASYS [Suspect]
     Route: 058
     Dates: start: 20090330, end: 20090420
  3. COPEGUS [Suspect]
     Indication: HEPATITIS C
     Route: 048
     Dates: start: 20090215, end: 20090420
  4. ALDACTONE [Concomitant]

REACTIONS (4)
  - ANAEMIA [None]
  - BLEEDING VARICOSE VEIN [None]
  - GASTROINTESTINAL HAEMORRHAGE [None]
  - THROMBOCYTOPENIA [None]
